FAERS Safety Report 7304974-0 (Version None)
Quarter: 2011Q1

REPORT INFORMATION
  Report Type: 
  Country: None (occurrence: None)
  Receive Date: 20110222
  Receipt Date: 20110210
  Transmission Date: 20110831
  Serious: Yes (Hospitalization)
  Sender: FDA-Public Use
  Company Number: US-CELGENEUS-163-21880-11021408

PATIENT
  Sex: Male
  Weight: 140 kg

DRUGS (7)
  1. METOPROLOL [Concomitant]
     Route: 065
  2. PREDNISONE [Concomitant]
     Route: 065
  3. FOLBIC [Concomitant]
     Route: 065
  4. METHADONE [Concomitant]
     Route: 065
  5. REVLIMID [Suspect]
     Route: 048
     Dates: start: 20101201
  6. DIGOXIN [Concomitant]
     Route: 065
  7. CARDURA [Concomitant]
     Route: 065

REACTIONS (2)
  - LEUKAEMIA [None]
  - PNEUMONIA [None]
